FAERS Safety Report 24718883 (Version 1)
Quarter: 2024Q4

REPORT INFORMATION
  Report Type: Spontaneous
  Country: US (occurrence: None)
  Receive Date: 20241210
  Receipt Date: 20241210
  Transmission Date: 20250115
  Serious: No
  Sender: Public
  Company Number: None

PATIENT
  Sex: Female
  Weight: 90 kg

DRUGS (1)
  1. PHENTERMINE [Suspect]
     Active Substance: PHENTERMINE\PHENTERMINE HYDROCHLORIDE
     Indication: Weight decreased

REACTIONS (2)
  - Mouth ulceration [None]
  - Tongue ulceration [None]
